FAERS Safety Report 8312781-5 (Version None)
Quarter: 2012Q2

REPORT INFORMATION
  Report Type: 
  Country: None (occurrence: None)
  Receive Date: 20120426
  Receipt Date: 20120423
  Transmission Date: 20120825
  Serious: No
  Sender: FDA-Public Use
  Company Number: US-PFIZER INC-2012100365

PATIENT
  Sex: Female
  Weight: 60.771 kg

DRUGS (2)
  1. TWYNSTA [Concomitant]
     Indication: HYPERTENSION
     Dosage: UNK
  2. TOVIAZ [Suspect]
     Indication: HYPERTONIC BLADDER
     Dosage: 8 MG, 1X/DAY
     Route: 048
     Dates: start: 20110101

REACTIONS (2)
  - RASH [None]
  - PRURITUS [None]
